FAERS Safety Report 10052414 (Version 2)
Quarter: 2014Q2

REPORT INFORMATION
  Report Type: Report from Study
  Country: US (occurrence: US)
  Receive Date: 20140402
  Receipt Date: 20140616
  Transmission Date: 20141212
  Serious: Yes (Hospitalization, Other)
  Sender: FDA-Public Use
  Company Number: US-JNJFOC-20140314670

PATIENT
  Age: 0 Day
  Sex: Male
  Weight: 2.79 kg

DRUGS (6)
  1. RISPERDAL [Suspect]
     Indication: PSYCHOTIC DISORDER
     Route: 064
  2. OXYCODONE [Suspect]
     Indication: SYMPHYSIOLYSIS
     Route: 064
  3. ATIVAN [Suspect]
     Indication: ANXIETY
     Route: 064
  4. EFFEXOR [Suspect]
     Indication: DEPRESSION
     Route: 064
  5. LAMICTAL [Suspect]
     Indication: BIPOLAR DISORDER
     Route: 064
  6. ALCOHOL [Suspect]
     Indication: PRODUCT USED FOR UNKNOWN INDICATION
     Route: 064

REACTIONS (2)
  - Respiratory distress [Recovering/Resolving]
  - Foetal exposure during pregnancy [Recovered/Resolved]
